FAERS Safety Report 17290046 (Version 2)
Quarter: 2020Q1

REPORT INFORMATION
  Report Type: Report from Study
  Country: CA (occurrence: CA)
  Receive Date: 20200120
  Receipt Date: 20200123
  Transmission Date: 20200409
  Serious: Yes (Hospitalization)
  Sender: FDA-Public Use
  Company Number: CA-HLSUS-2020-CA-000043

PATIENT
  Age: 51 Year
  Sex: Male
  Weight: 64 kg

DRUGS (1)
  1. CLOZARIL [Suspect]
     Active Substance: CLOZAPINE
     Dosage: DAILY
     Route: 048
     Dates: start: 20060906

REACTIONS (8)
  - Pericardial effusion [Unknown]
  - Cardiomyopathy [Unknown]
  - C-reactive protein increased [Unknown]
  - Dizziness [Recovered/Resolved]
  - Aortic valve sclerosis [Unknown]
  - Troponin increased [Unknown]
  - Right atrial enlargement [Unknown]
  - Tricuspid valve incompetence [Unknown]
